FAERS Safety Report 20024523 (Version 1)
Quarter: 2021Q4

REPORT INFORMATION
  Report Type: Spontaneous
  Country: DE (occurrence: DE)
  Receive Date: 20211102
  Receipt Date: 20211102
  Transmission Date: 20220303
  Serious: Yes (Hospitalization, Other)
  Sender: FDA-Public Use
  Company Number: DE-BAYER-2021-184611

PATIENT
  Age: 67 Year
  Sex: Male

DRUGS (5)
  1. CLOPIDOGREL [Interacting]
     Active Substance: CLOPIDOGREL BISULFATE
     Indication: Coronary arterial stent insertion
     Dosage: UNK
     Dates: end: 2021
  2. XARELTO [Interacting]
     Active Substance: RIVAROXABAN
     Indication: Coronary arterial stent insertion
     Dosage: UNK
     Dates: end: 2021
  3. XARELTO [Interacting]
     Active Substance: RIVAROXABAN
     Indication: Atrial fibrillation
  4. XARELTO [Interacting]
     Active Substance: RIVAROXABAN
     Indication: Coronary arterial stent insertion
     Dosage: UNK
     Dates: start: 2021
  5. XARELTO [Interacting]
     Active Substance: RIVAROXABAN
     Indication: Atrial fibrillation

REACTIONS (8)
  - Gingival bleeding [Not Recovered/Not Resolved]
  - Epistaxis [Recovered/Resolved]
  - Atrial fibrillation [Unknown]
  - Paraesthesia [Not Recovered/Not Resolved]
  - Heart rate increased [Unknown]
  - Off label use [Recovered/Resolved]
  - Dizziness [Not Recovered/Not Resolved]
  - Labelled drug-drug interaction medication error [Recovered/Resolved]

NARRATIVE: CASE EVENT DATE: 20200101
